FAERS Safety Report 8802285 (Version 1)
Quarter: 2012Q4

REPORT INFORMATION
  Report Type: 
  Country: ZA (occurrence: ZA)
  Receive Date: 20120921
  Receipt Date: 20120921
  Transmission Date: 20130627
  Serious: Yes (Death, Other)
  Sender: FDA-Public Use
  Company Number: PHHY2011ZA117226

PATIENT
  Sex: Male

DRUGS (2)
  1. GLIVEC [Suspect]
     Dates: start: 20101220
  2. HYDREA [Suspect]

REACTIONS (8)
  - Endocarditis [Fatal]
  - Diabetes mellitus [Fatal]
  - Obesity [Fatal]
  - Hypertension [Fatal]
  - Renal failure [Fatal]
  - Pancytopenia [Unknown]
  - Febrile neutropenia [Unknown]
  - Accidental exposure to product [None]
